FAERS Safety Report 22043556 (Version 1)
Quarter: 2023Q1

REPORT INFORMATION
  Report Type: Spontaneous
  Country: US (occurrence: US)
  Receive Date: 20230228
  Receipt Date: 20230228
  Transmission Date: 20230418
  Serious: Yes (Other)
  Sender: FDA-Public Use
  Company Number: US-SANOFI-01505160

PATIENT
  Age: 60 Year
  Sex: Male

DRUGS (1)
  1. DUPIXENT [Suspect]
     Active Substance: DUPILUMAB
     Indication: Nasal polyps
     Dosage: 300 MG, QOW
     Dates: start: 20200601

REACTIONS (9)
  - Brain oedema [Unknown]
  - Condition aggravated [Unknown]
  - Hypersensitivity vasculitis [Unknown]
  - Presyncope [Unknown]
  - Sinus disorder [Unknown]
  - Hypoaesthesia [Unknown]
  - Paraesthesia [Unknown]
  - Sensory disturbance [Unknown]
  - Fall [Unknown]

NARRATIVE: CASE EVENT DATE: 20210101
